FAERS Safety Report 5650680-8 (Version None)
Quarter: 2008Q1

REPORT INFORMATION
  Report Type: 
  Country: None (occurrence: None)
  Receive Date: 20080305
  Receipt Date: 20080226
  Transmission Date: 20080703
  Serious: Yes (Death, Other)
  Sender: FDA-Public Use
  Company Number: US-JNJFOC-20071102123

PATIENT
  Sex: Male
  Weight: 63.28 kg

DRUGS (6)
  1. REMICADE [Suspect]
     Indication: CROHN'S DISEASE
     Route: 042
  2. PREDNISONE TAB [Concomitant]
  3. DIOVAN [Concomitant]
     Indication: BLOOD PRESSURE
  4. NEXIUM [Concomitant]
  5. ALLOPURINOL [Concomitant]
  6. MULTI-VITAMIN [Concomitant]

REACTIONS (1)
  - ANGIOSARCOMA [None]
